FAERS Safety Report 20940190 (Version 1)
Quarter: 2022Q2

REPORT INFORMATION
  Report Type: Spontaneous
  Country: FR (occurrence: FR)
  Receive Date: 20220609
  Receipt Date: 20220609
  Transmission Date: 20220721
  Serious: Yes (Life-Threatening, Hospitalization)
  Sender: FDA-Public Use
  Company Number: None

PATIENT
  Age: 83 Year
  Sex: Female
  Weight: 76 kg

DRUGS (3)
  1. CLINDAMYCIN [Suspect]
     Active Substance: CLINDAMYCIN
     Indication: Bacteraemia
     Dosage: 1800 MG, 1X/DAY
     Route: 042
     Dates: start: 20220416, end: 20220513
  2. COLCHICINE [Suspect]
     Active Substance: COLCHICINE
     Indication: Chondrocalcinosis
     Route: 048
     Dates: start: 20220511, end: 20220515
  3. CEFTRIAXONE [Suspect]
     Active Substance: CEFTRIAXONE
     Indication: Bacteraemia
     Route: 042
     Dates: start: 20220502, end: 20220515

REACTIONS (2)
  - Hepatitis [Recovering/Resolving]
  - Lactic acidosis [Recovering/Resolving]

NARRATIVE: CASE EVENT DATE: 20220514
